FAERS Safety Report 24275880 (Version 2)
Quarter: 2024Q4

REPORT INFORMATION
  Report Type: Spontaneous
  Country: CA (occurrence: CA)
  Receive Date: 20240903
  Receipt Date: 20241009
  Transmission Date: 20250114
  Serious: Yes (Hospitalization, Other)
  Sender: BRISTOL MYERS SQUIBB
  Company Number: CA-JNJFOC-20240832115

PATIENT
  Age: 79 Year
  Sex: Female
  Weight: 53 kg

DRUGS (7)
  1. LENALIDOMIDE [Suspect]
     Active Substance: LENALIDOMIDE
     Indication: Plasma cell myeloma
     Dates: start: 20190621
  2. LENALIDOMIDE [Suspect]
     Active Substance: LENALIDOMIDE
     Dosage: MOST RECENT DOSE ON 02-SEP-2021
     Dates: end: 20210902
  3. DARATUMUMAB [Suspect]
     Active Substance: DARATUMUMAB
     Indication: Plasma cell myeloma
     Dosage: MED. KIT NO:25998
     Route: 058
     Dates: start: 20190621, end: 20240725
  4. DARATUMUMAB [Suspect]
     Active Substance: DARATUMUMAB
     Dosage: MOST RECENT DOSE 12-AUG-2024
     Route: 058
     Dates: end: 20240812
  5. DEXAMETHASONE [Concomitant]
     Active Substance: DEXAMETHASONE
     Indication: Plasma cell myeloma
     Route: 048
     Dates: start: 20190621
  6. DEXAMETHASONE [Concomitant]
     Active Substance: DEXAMETHASONE
     Dosage: MOST RECENT DOSE 12-AUG-2024
     Route: 048
     Dates: end: 20240812
  7. BORTEZOMIB [Concomitant]
     Active Substance: BORTEZOMIB
     Indication: Plasma cell myeloma
     Dosage: MED. KIT NO:51194-03
     Route: 058
     Dates: start: 20190621, end: 20191018

REACTIONS (1)
  - Dementia [Not Recovered/Not Resolved]

NARRATIVE: CASE EVENT DATE: 20240810
